FAERS Safety Report 10715881 (Version 1)
Quarter: 2015Q1

REPORT INFORMATION
  Report Type: Spontaneous
  Country: US (occurrence: None)
  Receive Date: 20150108
  Receipt Date: 20150108
  Transmission Date: 20150721
  Serious: Yes (Hospitalization)
  Sender: FDA-Public Use
  Company Number: 395589

PATIENT
  Age: 43 Year
  Sex: Female
  Weight: 76.2 kg

DRUGS (3)
  1. LEVEMIR [Suspect]
     Active Substance: INSULIN DETEMIR
     Indication: DIABETES MELLITUS INADEQUATE CONTROL
     Route: 058
     Dates: start: 20131011
  2. LEVOTHYROXINE SODIUM (LEVOTHYROXINE SODIUM) [Concomitant]
  3. HUMULIN MIX (INSULIN HUMAN, INSULIN HUMAN INJECTION, ISOPHANE) [Concomitant]

REACTIONS (2)
  - Blood glucose decreased [None]
  - Hypoglycaemic unconsciousness [None]

NARRATIVE: CASE EVENT DATE: 20131202
